FAERS Safety Report 5270876-7 (Version None)
Quarter: 2007Q1

REPORT INFORMATION
  Report Type: 
  Country: None (occurrence: None)
  Receive Date: 20061214
  Receipt Date: 20060630
  Transmission Date: 20070707
  Serious: Yes (Hospitalization, Other)
  Sender: FDA-Public Use
  Company Number: 2005153426

PATIENT
  Age: 55 Year
  Sex: Male

DRUGS (6)
  1. BEXTRA [Suspect]
     Indication: ARTHRITIS
     Dosage: 20 MG (20 MG,1 IN 1 D)
     Dates: start: 20040804, end: 20041112
  2. TOPROL-XL [Concomitant]
  3. NORVASC [Concomitant]
  4. XANAX [Concomitant]
  5. TRAZODONE HCL [Concomitant]
  6. VITAMIN E [Concomitant]

REACTIONS (1)
  - MYOCARDIAL INFARCTION [None]
